FAERS Safety Report 7096237-6 (Version None)
Quarter: 2010Q4

REPORT INFORMATION
  Report Type: 
  Country: None (occurrence: None)
  Receive Date: 20101109
  Receipt Date: 20101109
  Transmission Date: 20110411
  Serious: No
  Sender: FDA-Public Use
  Company Number: None

PATIENT
  Age: 65 Year
  Sex: Male

DRUGS (2)
  1. GENTAMYCIN 120MG/100ML Q24HR BAXTER [Suspect]
     Indication: ALPHA HAEMOLYTIC STREPTOCOCCAL INFECTION
     Dosage: 120MG/100ML Q12HR IV
     Route: 042
  2. GENTAMYCIN 120MG/100ML Q24HR BAXTER [Suspect]
     Indication: ENDOCARDITIS
     Dosage: 120MG/100ML Q12HR IV
     Route: 042

REACTIONS (1)
  - HEARING IMPAIRED [None]
